FAERS Safety Report 7242059-2 (Version None)
Quarter: 2011Q1

REPORT INFORMATION
  Report Type: 
  Country: None (occurrence: None)
  Receive Date: 20110124
  Receipt Date: 20110113
  Transmission Date: 20110831
  Serious: Yes (Other)
  Sender: FDA-Public Use
  Company Number: PHEH2006US09630

PATIENT
  Sex: Male
  Weight: 84 kg

DRUGS (14)
  1. ZOMETA [Suspect]
     Indication: OSTEOPOROSIS
     Dosage: 4 MG, QMO
     Route: 042
     Dates: start: 20040116, end: 20060922
  2. FAMOTIDINE [Concomitant]
  3. EPIPEN [Concomitant]
  4. FOSAMAX [Suspect]
  5. CLONAZEPAM [Concomitant]
  6. SENOKOT [Concomitant]
  7. LORTAB [Concomitant]
  8. LEXAPRO [Concomitant]
  9. HYDROCODONE [Concomitant]
  10. OXYCONTIN [Concomitant]
  11. ALLEGRA [Concomitant]
  12. GASTROCROM [Concomitant]
  13. MIRALAX [Concomitant]
  14. BENADRYL ^PFIZER WARNER-LAMBERT^ [Concomitant]

REACTIONS (31)
  - NECK PAIN [None]
  - OSTEONECROSIS OF JAW [None]
  - BONE FRAGMENTATION [None]
  - DUODENITIS [None]
  - INTERVERTEBRAL DISC DEGENERATION [None]
  - SWELLING [None]
  - SINUSITIS [None]
  - PAIN IN EXTREMITY [None]
  - KYPHOSIS [None]
  - PRESBYOESOPHAGUS [None]
  - GINGIVAL DISORDER [None]
  - BURNING SENSATION [None]
  - AMNESIA [None]
  - FALL [None]
  - SPINAL OSTEOARTHRITIS [None]
  - PAIN IN JAW [None]
  - PAIN [None]
  - TOOTH DISORDER [None]
  - INFECTION [None]
  - TOOTH FRACTURE [None]
  - PARAESTHESIA [None]
  - INTERVERTEBRAL DISC PROTRUSION [None]
  - BACK PAIN [None]
  - ANXIETY [None]
  - INJURY [None]
  - HAEMORRHAGE [None]
  - SENSITIVITY OF TEETH [None]
  - BONE DISORDER [None]
  - SINUS POLYP [None]
  - GASTROOESOPHAGEAL REFLUX DISEASE [None]
  - BREATH ODOUR [None]
